FAERS Safety Report 6889756-6 (Version None)
Quarter: 2010Q3

REPORT INFORMATION
  Report Type: 
  Country: None (occurrence: None)
  Receive Date: 20100730
  Receipt Date: 20080428
  Transmission Date: 20110219
  Serious: No
  Sender: FDA-Public Use
  Company Number: US-PFIZER INC-2008036846

PATIENT
  Sex: Female
  Weight: 50 kg

DRUGS (4)
  1. LIPITOR [Suspect]
     Indication: BLOOD CHOLESTEROL ABNORMAL
     Dates: start: 20080415
  2. ELAVIL [Concomitant]
     Indication: MIGRAINE
  3. ATIVAN [Concomitant]
     Indication: ANXIETY
  4. MULTI-VITAMINS [Concomitant]

REACTIONS (3)
  - ARTHROPATHY [None]
  - CHEST PAIN [None]
  - RASH MACULAR [None]
